FAERS Safety Report 4342594-0 (Version None)
Quarter: 2004Q2

REPORT INFORMATION
  Report Type: 
  Country: None (occurrence: None)
  Receive Date: 20040421
  Receipt Date: 20040414
  Transmission Date: 20050107
  Serious: Yes (Death)
  Sender: FDA-Public Use
  Company Number: US-JNJFOC-20040305476

PATIENT
  Sex: Male
  Weight: 49.44 kg

DRUGS (1)
  1. DURAGESIC [Suspect]
     Route: 062

REACTIONS (1)
  - MALIGNANT NEOPLASM PROGRESSION [None]
